FAERS Safety Report 7602901-X (Version None)
Quarter: 2011Q2

REPORT INFORMATION
  Report Type: 
  Country: None (occurrence: None)
  Receive Date: 20110630
  Receipt Date: 20110520
  Transmission Date: 20111010
  Serious: Yes (Hospitalization, Other)
  Sender: FDA-Public Use
  Company Number: 2011002236

PATIENT
  Age: 69 Year
  Sex: Male
  Weight: 60 kg

DRUGS (2)
  1. ERLOTINIB HYDROCHLORIDE [Suspect]
     Indication: HEPATIC NEOPLASM MALIGNANT
     Dosage: 150 MG, UID/QD, ORAL
     Route: 048
     Dates: start: 20110128
  2. SORAFENIB (SORAFENIB) TABLET [Suspect]
     Indication: HEPATIC NEOPLASM MALIGNANT
     Dosage: 400 MG, BID, ORAL
     Route: 048
     Dates: start: 20110128

REACTIONS (6)
  - PYREXIA [None]
  - BLOOD BILIRUBIN INCREASED [None]
  - WHITE BLOOD CELL COUNT INCREASED [None]
  - BLOOD ALBUMIN DECREASED [None]
  - HYPERTENSION [None]
  - NEUTROPHIL PERCENTAGE INCREASED [None]
